FAERS Safety Report 23553171 (Version 7)
Quarter: 2024Q4

REPORT INFORMATION
  Report Type: Report from Study
  Country: CN (occurrence: CN)
  Receive Date: 20240222
  Receipt Date: 20241205
  Transmission Date: 20250115
  Serious: Yes (Death, Hospitalization, Other)
  Sender: ROCHE
  Company Number: CN-ROCHE-3512909

PATIENT
  Age: 74 Year
  Sex: Female

DRUGS (101)
  1. POLATUZUMAB VEDOTIN [Suspect]
     Active Substance: POLATUZUMAB VEDOTIN
     Indication: Diffuse large B-cell lymphoma
     Dosage: ON 31-JAN-2024, HE RECEIVED MOST RECENT DOSE OF STUDY DRUG PRIOR TO AE ONSET.
     Route: 041
     Dates: start: 202401, end: 202401
  2. MABTHERA [Suspect]
     Active Substance: RITUXIMAB
     Indication: Diffuse large B-cell lymphoma
     Route: 042
     Dates: start: 202401, end: 202401
  3. PEGASPARGASE [Suspect]
     Active Substance: PEGASPARGASE
     Indication: Diffuse large B-cell lymphoma
     Dosage: 3000 UNIT
     Route: 030
  4. BENDAMUSTINE [Suspect]
     Active Substance: BENDAMUSTINE
     Indication: Diffuse large B-cell lymphoma
     Route: 042
     Dates: start: 202401
  5. FUROSEMIDE [Concomitant]
     Active Substance: FUROSEMIDE
     Route: 048
     Dates: start: 20240124, end: 20240124
  6. FUROSEMIDE [Concomitant]
     Active Substance: FUROSEMIDE
     Route: 048
     Dates: start: 20240126, end: 20240126
  7. FUROSEMIDE [Concomitant]
     Active Substance: FUROSEMIDE
     Route: 048
     Dates: start: 20240126, end: 20240204
  8. FUROSEMIDE [Concomitant]
     Active Substance: FUROSEMIDE
     Route: 048
     Dates: start: 20240221, end: 20240221
  9. FUROSEMIDE [Concomitant]
     Active Substance: FUROSEMIDE
     Route: 048
     Dates: start: 20240222, end: 20240222
  10. SPIRONOLACTONE [Concomitant]
     Active Substance: SPIRONOLACTONE
     Dosage: 1 TABLET
     Route: 048
     Dates: start: 20240124, end: 20240124
  11. SPIRONOLACTONE [Concomitant]
     Active Substance: SPIRONOLACTONE
     Dosage: 1 TABLET
     Route: 048
     Dates: start: 20240126, end: 20240204
  12. TENOFOVIR DISOPROXIL FUMARATE [Concomitant]
     Active Substance: TENOFOVIR DISOPROXIL FUMARATE
     Route: 048
     Dates: start: 20240124, end: 20240124
  13. ERYTHROPOIETIN [Concomitant]
     Active Substance: ERYTHROPOIETIN
     Route: 058
     Dates: start: 20240126, end: 20240204
  14. ERYTHROPOIETIN [Concomitant]
     Active Substance: ERYTHROPOIETIN
     Route: 058
     Dates: start: 20240124, end: 20240124
  15. POTASSIUM CHLORIDE [Concomitant]
     Active Substance: POTASSIUM CHLORIDE
     Indication: Hypokalaemia
     Route: 042
     Dates: start: 20240124, end: 20240124
  16. POTASSIUM CHLORIDE [Concomitant]
     Active Substance: POTASSIUM CHLORIDE
     Route: 042
     Dates: start: 20240131, end: 20240201
  17. POTASSIUM CHLORIDE [Concomitant]
     Active Substance: POTASSIUM CHLORIDE
     Route: 042
     Dates: start: 20240127, end: 20240127
  18. POTASSIUM CHLORIDE [Concomitant]
     Active Substance: POTASSIUM CHLORIDE
     Route: 042
     Dates: start: 20240130, end: 20240130
  19. POTASSIUM CHLORIDE [Concomitant]
     Active Substance: POTASSIUM CHLORIDE
     Route: 042
     Dates: start: 20240201, end: 20240201
  20. POTASSIUM CHLORIDE [Concomitant]
     Active Substance: POTASSIUM CHLORIDE
     Route: 042
     Dates: start: 20240215, end: 20240215
  21. POTASSIUM CHLORIDE [Concomitant]
     Active Substance: POTASSIUM CHLORIDE
     Route: 042
     Dates: start: 20240216, end: 20240216
  22. POTASSIUM CHLORIDE [Concomitant]
     Active Substance: POTASSIUM CHLORIDE
     Dates: start: 20240216, end: 20240216
  23. POTASSIUM CHLORIDE [Concomitant]
     Active Substance: POTASSIUM CHLORIDE
     Dates: start: 20240217, end: 20240217
  24. POTASSIUM CHLORIDE [Concomitant]
     Active Substance: POTASSIUM CHLORIDE
     Route: 042
     Dates: start: 20240217, end: 20240217
  25. POTASSIUM CHLORIDE [Concomitant]
     Active Substance: POTASSIUM CHLORIDE
     Route: 042
     Dates: start: 20240221, end: 20240221
  26. RECOMBINANT HUMAN BRAIN NATRIURETIC PEPTIDE [Concomitant]
     Route: 042
     Dates: start: 20240124, end: 20240124
  27. RECOMBINANT HUMAN BRAIN NATRIURETIC PEPTIDE [Concomitant]
     Route: 042
     Dates: start: 20240126, end: 20240126
  28. RECOMBINANT HUMAN BRAIN NATRIURETIC PEPTIDE [Concomitant]
     Route: 042
     Dates: start: 20240127, end: 20240127
  29. RECOMBINANT HUMAN BRAIN NATRIURETIC PEPTIDE [Concomitant]
     Route: 042
     Dates: start: 20240128, end: 20240128
  30. RECOMBINANT HUMAN BRAIN NATRIURETIC PEPTIDE [Concomitant]
     Route: 042
     Dates: start: 20240129, end: 20240129
  31. RECOMBINANT HUMAN BRAIN NATRIURETIC PEPTIDE [Concomitant]
     Route: 042
     Dates: start: 20240130, end: 20240130
  32. RECOMBINANT HUMAN BRAIN NATRIURETIC PEPTIDE [Concomitant]
     Route: 042
     Dates: start: 20240130, end: 20240131
  33. RECOMBINANT HUMAN BRAIN NATRIURETIC PEPTIDE [Concomitant]
     Route: 042
     Dates: start: 20240131, end: 20240131
  34. RECOMBINANT HUMAN BRAIN NATRIURETIC PEPTIDE [Concomitant]
     Route: 042
     Dates: start: 20240201, end: 20240201
  35. RECOMBINANT HUMAN BRAIN NATRIURETIC PEPTIDE [Concomitant]
     Route: 042
     Dates: start: 20240202, end: 20240202
  36. NADROPARIN CALCIUM [Concomitant]
     Active Substance: NADROPARIN CALCIUM
     Route: 058
     Dates: start: 20240126, end: 20240204
  37. NADROPARIN CALCIUM [Concomitant]
     Active Substance: NADROPARIN CALCIUM
     Route: 058
     Dates: start: 20240215, end: 20240224
  38. TENOFOVIR DISOPROXIL FUMARATE [Concomitant]
     Active Substance: TENOFOVIR DISOPROXIL FUMARATE
     Route: 048
     Dates: start: 20240126, end: 20240204
  39. TENOFOVIR DISOPROXIL FUMARATE [Concomitant]
     Active Substance: TENOFOVIR DISOPROXIL FUMARATE
     Route: 048
     Dates: start: 20240215, end: 20240224
  40. TUCIDINOSTAT [Concomitant]
     Active Substance: TUCIDINOSTAT
     Route: 048
     Dates: start: 20240126, end: 20240204
  41. DAPAGLIFLOZIN [Concomitant]
     Active Substance: DAPAGLIFLOZIN
     Route: 048
     Dates: start: 20240126, end: 20240204
  42. ATORVASTATIN CALCIUM [Concomitant]
     Active Substance: ATORVASTATIN CALCIUM
     Indication: Dyslipidaemia
     Route: 048
     Dates: start: 20240126, end: 20240130
  43. OMEPRAZOLE SODIUM [Concomitant]
     Active Substance: OMEPRAZOLE SODIUM
     Route: 042
     Dates: start: 20240128, end: 20240128
  44. OMEPRAZOLE SODIUM [Concomitant]
     Active Substance: OMEPRAZOLE SODIUM
     Route: 042
     Dates: start: 20240128, end: 20240130
  45. THYMALFASIN [Concomitant]
     Active Substance: THYMALFASIN
     Route: 058
     Dates: start: 20240130, end: 20240204
  46. THYMALFASIN [Concomitant]
     Active Substance: THYMALFASIN
     Route: 058
     Dates: start: 20240220, end: 20240220
  47. HUMAN IMMUNOGLOBULIN G [Concomitant]
     Active Substance: HUMAN IMMUNOGLOBULIN G
     Route: 042
     Dates: start: 20240131, end: 20240204
  48. HUMAN IMMUNOGLOBULIN G [Concomitant]
     Active Substance: HUMAN IMMUNOGLOBULIN G
     Route: 042
     Dates: start: 20240130, end: 20240130
  49. ESOMEPRAZOLE SODIUM [Concomitant]
     Active Substance: ESOMEPRAZOLE SODIUM
     Route: 042
     Dates: start: 20240130, end: 20240204
  50. ESOMEPRAZOLE SODIUM [Concomitant]
     Active Substance: ESOMEPRAZOLE SODIUM
     Route: 042
     Dates: start: 20240215, end: 20240215
  51. ESOMEPRAZOLE SODIUM [Concomitant]
     Active Substance: ESOMEPRAZOLE SODIUM
     Route: 042
     Dates: start: 20240215, end: 20240217
  52. ESOMEPRAZOLE SODIUM [Concomitant]
     Active Substance: ESOMEPRAZOLE SODIUM
     Route: 042
     Dates: start: 20240217, end: 20240219
  53. SACUBITRIL\VALSARTAN [Concomitant]
     Active Substance: SACUBITRIL\VALSARTAN
     Route: 048
     Dates: start: 20240202, end: 20240204
  54. DIPHENHYDRAMINE HYDROCHLORIDE [Concomitant]
     Active Substance: DIPHENHYDRAMINE HYDROCHLORIDE
     Route: 030
     Dates: start: 20240201, end: 20240201
  55. DIPHENHYDRAMINE HYDROCHLORIDE [Concomitant]
     Active Substance: DIPHENHYDRAMINE HYDROCHLORIDE
     Route: 030
     Dates: start: 20240131, end: 20240131
  56. DIPHENHYDRAMINE HYDROCHLORIDE [Concomitant]
     Active Substance: DIPHENHYDRAMINE HYDROCHLORIDE
     Route: 030
     Dates: start: 20240221, end: 20240221
  57. DIPHENHYDRAMINE HYDROCHLORIDE [Concomitant]
     Active Substance: DIPHENHYDRAMINE HYDROCHLORIDE
     Route: 030
     Dates: start: 20240222, end: 20240222
  58. DEXAMETHASONE SODIUM PHOSPHATE [Concomitant]
     Active Substance: DEXAMETHASONE SODIUM PHOSPHATE
     Route: 042
     Dates: start: 20240201, end: 20240201
  59. DEXAMETHASONE SODIUM PHOSPHATE [Concomitant]
     Active Substance: DEXAMETHASONE SODIUM PHOSPHATE
     Route: 042
     Dates: start: 20240131, end: 20240131
  60. PALONOSETRON HYDROCHLORIDE [Concomitant]
     Active Substance: PALONOSETRON HYDROCHLORIDE
     Route: 042
     Dates: start: 20240131, end: 20240131
  61. ACETAMINOPHEN [Concomitant]
     Active Substance: ACETAMINOPHEN
     Route: 048
     Dates: start: 20240131, end: 20240131
  62. MECAPEGFILGRASTIM [Concomitant]
     Active Substance: MECAPEGFILGRASTIM
     Route: 058
     Dates: start: 20240201, end: 20240201
  63. BETAHISTINE MESILATE [Concomitant]
     Active Substance: BETAHISTINE MESILATE
     Indication: Dizziness
     Route: 048
     Dates: start: 20240215, end: 20240216
  64. Salivae Miltiorrhizae Liguspyragine Hydrochloride and Glucose [Concomitant]
     Route: 042
     Dates: start: 20240215, end: 20240219
  65. ESOMEPRAZOLE MAGNESIUM [Concomitant]
     Active Substance: ESOMEPRAZOLE MAGNESIUM
     Route: 048
     Dates: start: 20240215, end: 20240216
  66. ERYTHROPOIETIN [Concomitant]
     Active Substance: ERYTHROPOIETIN
     Indication: Anaemia
     Route: 058
     Dates: start: 20240215, end: 20240220
  67. CALCIUM GLUCONATE [Concomitant]
     Active Substance: CALCIUM GLUCONATE
     Indication: Hypocalcaemia
     Route: 042
     Dates: start: 20240215, end: 20240215
  68. DOXOFYLLINE [Concomitant]
     Active Substance: DOXOFYLLINE
     Indication: Chest discomfort
     Route: 042
     Dates: start: 20240215, end: 20240215
  69. DOXOFYLLINE [Concomitant]
     Active Substance: DOXOFYLLINE
     Indication: Dyspnoea
  70. LEVALBUTEROL HYDROCHLORIDE [Concomitant]
     Active Substance: LEVALBUTEROL HYDROCHLORIDE
     Indication: Chest discomfort
     Route: 055
     Dates: start: 20240215, end: 20240215
  71. LEVALBUTEROL HYDROCHLORIDE [Concomitant]
     Active Substance: LEVALBUTEROL HYDROCHLORIDE
     Indication: Dyspnoea
  72. URSODOXICOLTAURINE [Concomitant]
     Active Substance: URSODOXICOLTAURINE
     Route: 048
     Dates: start: 20240215, end: 20240218
  73. BICYCLOL [Concomitant]
     Active Substance: BICYCLOL
     Indication: Transaminases increased
     Route: 048
     Dates: start: 20240215, end: 20240218
  74. METHYLPREDNISOLONE SODIUM SUCCINATE [Concomitant]
     Active Substance: METHYLPREDNISOLONE SODIUM SUCCINATE
     Route: 042
     Dates: start: 20240215, end: 20240215
  75. TROPISETRON HYDROCHLORIDE [Concomitant]
     Active Substance: TROPISETRON HYDROCHLORIDE
     Route: 042
     Dates: start: 20240218, end: 20240219
  76. TROPISETRON HYDROCHLORIDE [Concomitant]
     Active Substance: TROPISETRON HYDROCHLORIDE
     Route: 042
     Dates: start: 20240215, end: 20240217
  77. TROPISETRON HYDROCHLORIDE [Concomitant]
     Active Substance: TROPISETRON HYDROCHLORIDE
     Route: 042
     Dates: start: 20240221, end: 20240224
  78. FENTANYL [Concomitant]
     Active Substance: FENTANYL
     Indication: Pain
     Dates: start: 20240218, end: 20240219
  79. BUPRENORPHINE [Concomitant]
     Active Substance: BUPRENORPHINE
     Indication: Pain
     Dates: start: 20240219, end: 20240219
  80. ESTAZOLAM [Concomitant]
     Active Substance: ESTAZOLAM
     Dosage: 1 TABLET
     Route: 048
     Dates: start: 20240219, end: 20240221
  81. DOPAMINE HYDROCHLORIDE [Concomitant]
     Active Substance: DOPAMINE HYDROCHLORIDE
     Dates: start: 20240215, end: 20240215
  82. Diclofenac Sodium Lidocaine Hydrochloride [Concomitant]
     Indication: Pain
     Route: 030
     Dates: start: 20240215, end: 20240215
  83. METOCLOPRAMIDE DIHYDROCHLORIDE [Concomitant]
     Active Substance: METOCLOPRAMIDE DIHYDROCHLORIDE
     Route: 030
     Dates: start: 20240215, end: 20240215
  84. METOCLOPRAMIDE DIHYDROCHLORIDE [Concomitant]
     Active Substance: METOCLOPRAMIDE DIHYDROCHLORIDE
     Route: 030
     Dates: start: 20240221, end: 20240221
  85. NOREPINEPHRINE BITARTRATE [Concomitant]
     Active Substance: NOREPINEPHRINE BITARTRATE
     Dates: start: 20240216, end: 20240216
  86. NOREPINEPHRINE BITARTRATE [Concomitant]
     Active Substance: NOREPINEPHRINE BITARTRATE
     Dates: start: 20240217, end: 20240217
  87. NOREPINEPHRINE BITARTRATE [Concomitant]
     Active Substance: NOREPINEPHRINE BITARTRATE
     Dates: start: 20240218, end: 20240218
  88. NOREPINEPHRINE BITARTRATE [Concomitant]
     Active Substance: NOREPINEPHRINE BITARTRATE
     Dates: start: 20240219, end: 20240219
  89. NOREPINEPHRINE BITARTRATE [Concomitant]
     Active Substance: NOREPINEPHRINE BITARTRATE
     Dates: start: 20240215, end: 20240215
  90. NOREPINEPHRINE BITARTRATE [Concomitant]
     Active Substance: NOREPINEPHRINE BITARTRATE
     Dates: start: 20240220, end: 20240220
  91. NOREPINEPHRINE BITARTRATE [Concomitant]
     Active Substance: NOREPINEPHRINE BITARTRATE
     Dates: start: 20240221, end: 20240221
  92. NOREPINEPHRINE BITARTRATE [Concomitant]
     Active Substance: NOREPINEPHRINE BITARTRATE
     Dates: start: 20240222, end: 20240222
  93. NOREPINEPHRINE BITARTRATE [Concomitant]
     Active Substance: NOREPINEPHRINE BITARTRATE
     Dates: start: 20240222, end: 20240222
  94. NOREPINEPHRINE BITARTRATE [Concomitant]
     Active Substance: NOREPINEPHRINE BITARTRATE
     Dates: start: 20240223, end: 20240223
  95. NOREPINEPHRINE BITARTRATE [Concomitant]
     Active Substance: NOREPINEPHRINE BITARTRATE
     Dates: start: 20240224, end: 20240224
  96. NITROGLYCERIN [Concomitant]
     Active Substance: NITROGLYCERIN
     Route: 060
     Dates: start: 20240218, end: 20240218
  97. NITROGLYCERIN [Concomitant]
     Active Substance: NITROGLYCERIN
     Route: 060
     Dates: start: 20240217, end: 20240217
  98. TRAMADOL HYDROCHLORIDE [Concomitant]
     Active Substance: TRAMADOL HYDROCHLORIDE
     Indication: Pain
     Route: 030
     Dates: start: 20240219, end: 20240219
  99. HYDROMORPHONE HYDROCHLORIDE [Concomitant]
     Active Substance: HYDROMORPHONE HYDROCHLORIDE
     Indication: Pain
     Dates: start: 20240219, end: 20240219
  100. ALBUMIN HUMAN [Concomitant]
     Active Substance: ALBUMIN HUMAN
     Indication: Hypoproteinaemia
     Route: 042
     Dates: start: 20240221, end: 20240221
  101. PROMETHAZINE HYDROCHLORIDE [Concomitant]
     Active Substance: PROMETHAZINE HYDROCHLORIDE
     Route: 030
     Dates: start: 20240222, end: 20240222

REACTIONS (5)
  - Shock [Fatal]
  - Haemoglobin decreased [Recovered/Resolved with Sequelae]
  - Red blood cell count decreased [Recovered/Resolved]
  - Blood bilirubin increased [Not Recovered/Not Resolved]
  - White blood cell count decreased [Recovered/Resolved]

NARRATIVE: CASE EVENT DATE: 20240124
